FAERS Safety Report 20087205 (Version 1)
Quarter: 2021Q4

REPORT INFORMATION
  Report Type: Spontaneous
  Country: US (occurrence: None)
  Receive Date: 20211118
  Receipt Date: 20211118
  Transmission Date: 20220304
  Serious: No
  Sender: FDA-Public Use
  Company Number: None

PATIENT
  Age: 55 Year
  Sex: Female
  Weight: 103.5 kg

DRUGS (1)
  1. LEVOTHYROXINE SODIUM [Suspect]
     Active Substance: LEVOTHYROXINE SODIUM
     Indication: Autoimmune thyroiditis
     Route: 048
     Dates: start: 20210708, end: 20210715

REACTIONS (10)
  - Nausea [None]
  - Anxiety [None]
  - Insomnia [None]
  - Headache [None]
  - Panic attack [None]
  - Rash [None]
  - Mental disorder [None]
  - Vomiting [None]
  - Aggression [None]
  - Product label issue [None]

NARRATIVE: CASE EVENT DATE: 20210715
